FAERS Safety Report 13170146 (Version 2)
Quarter: 2017Q1

REPORT INFORMATION
  Report Type: Spontaneous
  Country: US (occurrence: US)
  Receive Date: 20170131
  Receipt Date: 20170301
  Transmission Date: 20170428
  Serious: Yes (Other)
  Sender: FDA-Public Use
  Company Number: US-IPSEN BIOPHARMACEUTICALS, INC.-2017-00735

PATIENT
  Age: 60 Year
  Sex: Male
  Weight: 113.4 kg

DRUGS (8)
  1. SYNTHROID [Concomitant]
     Active Substance: LEVOTHYROXINE SODIUM
     Indication: THYROID DISORDER
  2. SOMAVERT [Suspect]
     Active Substance: PEGVISOMANT
     Dates: start: 20161207
  3. SOMAVERT [Suspect]
     Active Substance: PEGVISOMANT
     Indication: ACROMEGALY
  4. AXIRON [Concomitant]
     Active Substance: TESTOSTERONE
     Indication: BLOOD TESTOSTERONE DECREASED
  5. MAGNESIUM [Concomitant]
     Active Substance: MAGNESIUM
     Indication: HEADACHE
  6. SOMATULINE [Suspect]
     Active Substance: LANREOTIDE ACETATE
     Indication: ACROMEGALY
     Dosage: NOT REPORTED
     Route: 065
     Dates: end: 201607
  7. SOMAVERT [Suspect]
     Active Substance: PEGVISOMANT
     Dates: start: 20161108, end: 20161207
  8. VERAPAMIL [Concomitant]
     Active Substance: VERAPAMIL HYDROCHLORIDE

REACTIONS (2)
  - Headache [Not Recovered/Not Resolved]
  - Pituitary tumour recurrent [Unknown]

NARRATIVE: CASE EVENT DATE: 201612
